FAERS Safety Report 23015922 (Version 1)
Quarter: 2023Q4

REPORT INFORMATION
  Report Type: Spontaneous
  Country: FR (occurrence: FR)
  Receive Date: 20231002
  Receipt Date: 20231002
  Transmission Date: 20240109
  Serious: Yes (Hospitalization, Other)
  Sender: FDA-Public Use
  Company Number: None

PATIENT
  Age: 82 Year
  Sex: Female

DRUGS (2)
  1. AMBRISENTAN [Suspect]
     Active Substance: AMBRISENTAN
     Indication: Pulmonary arterial hypertension
     Dosage: 5 MG, QD
     Route: 048
     Dates: start: 20230308, end: 20230322
  2. BOSENTAN [Suspect]
     Active Substance: BOSENTAN
     Indication: Pulmonary arterial hypertension
     Dosage: 125 MG, QD
     Route: 048
     Dates: start: 20230323, end: 20230801

REACTIONS (1)
  - Aplastic anaemia [Not Recovered/Not Resolved]
